FAERS Safety Report 7919259-9 (Version None)
Quarter: 2011Q4

REPORT INFORMATION
  Report Type: 
  Country: None (occurrence: None)
  Receive Date: 20111116
  Receipt Date: 20111116
  Transmission Date: 20120403
  Serious: No
  Sender: FDA-Public Use
  Company Number: None

PATIENT
  Sex: Female
  Weight: 76.2043 kg

DRUGS (3)
  1. SUBOXONE [Suspect]
     Indication: PAIN
     Dosage: WITH FILM O.D S.L
     Route: 060
     Dates: start: 20111001
  2. SUBOXONE [Suspect]
     Indication: PAIN
     Dosage: WITH FILM O.D S.L
     Route: 060
     Dates: start: 20111101
  3. SUBOXONE [Suspect]
     Indication: PAIN
     Dosage: WITH FILM O.D S.L
     Route: 060
     Dates: start: 20110901

REACTIONS (3)
  - DRUG EFFECT DECREASED [None]
  - PRODUCT FRIABLE [None]
  - PRODUCT DOSAGE FORM ISSUE [None]
